FAERS Safety Report 6336625-6 (Version None)
Quarter: 2009Q3

REPORT INFORMATION
  Report Type: 
  Country: None (occurrence: None)
  Receive Date: 20090901
  Receipt Date: 20090623
  Transmission Date: 20100115
  Serious: Yes (Hospitalization)
  Sender: FDA-Public Use
  Company Number: SG-ROCHE-574640

PATIENT
  Sex: Male
  Weight: 50.9 kg

DRUGS (13)
  1. CAPECITABINE [Suspect]
     Indication: GASTRIC CANCER
     Dosage: FREQUENCY: TWICE DAILY FOR 14 DAYS EVERY 3 WEEKS, THERAPY TEMPORARILY INTERRUPTED ON 31 JULY 2008.
     Route: 048
     Dates: start: 20080515, end: 20080801
  2. CAPECITABINE [Suspect]
     Dosage: FREQUENCY: D1-14 EVERY 3 WEEK.
     Route: 048
     Dates: start: 20080822
  3. BLINDED BEVACIZUMAB [Suspect]
     Indication: GASTRIC CANCER
     Dosage: FORM:INFUSION, FREQUENCY: EVERY 3 WEEKS ON DAY 1 OF CYCLE 1, LAST DOSE PRIOR TO EVENT:25 JULY 2008
     Route: 042
     Dates: start: 20080515
  4. CISPLATIN [Suspect]
     Indication: GASTRIC CANCER
     Dosage: DOSAGE FORM: INFUSION, FREQUENCY: DAY 1 EVERY 3 WEEKS
     Route: 042
     Dates: start: 20080515
  5. SIMVASTATIN [Concomitant]
     Dates: start: 20061201
  6. OMEPRAZOLE [Concomitant]
     Dosage: EVERY MORNING
     Dates: start: 20080421
  7. OMEPRAZOLE [Concomitant]
     Dates: start: 20080715
  8. AMLODIPINE [Concomitant]
     Dates: start: 20080507
  9. METOCLOPRAMIDE [Concomitant]
     Dates: start: 20080709
  10. DOMPERIDONE [Concomitant]
     Dates: start: 20080505
  11. METFORMIN HCL [Concomitant]
     Dates: start: 20080625
  12. FLUMUCIL [Concomitant]
     Dosage: DOSE FREQUENCY: IN THE EVENING
     Dates: start: 20080708
  13. LACTULOSE [Concomitant]
     Dosage: DOSING FREQUENCY: AS NEEDED
     Dates: start: 20080711

REACTIONS (1)
  - RENAL SALT-WASTING SYNDROME [None]
